FAERS Safety Report 17677840 (Version 4)
Quarter: 2021Q4

REPORT INFORMATION
  Report Type: Spontaneous
  Country: US (occurrence: None)
  Receive Date: 20200416
  Receipt Date: 20211111
  Transmission Date: 20220303
  Serious: Yes (Other)
  Sender: FDA-Public Use
  Company Number: 2020SE51038

PATIENT
  Age: 25310 Day
  Sex: Female
  Weight: 70.3 kg

DRUGS (51)
  1. NEXIUM [Suspect]
     Active Substance: ESOMEPRAZOLE MAGNESIUM
     Indication: Gastrooesophageal reflux disease
     Route: 048
     Dates: start: 200208, end: 201612
  2. NEXIUM [Suspect]
     Active Substance: ESOMEPRAZOLE MAGNESIUM
     Indication: Gastrooesophageal reflux disease
     Route: 048
     Dates: start: 2007, end: 2009
  3. PRILOSEC [Suspect]
     Active Substance: OMEPRAZOLE MAGNESIUM
     Indication: Gastrooesophageal reflux disease
     Route: 048
     Dates: start: 200208, end: 201612
  4. PRILOSEC [Suspect]
     Active Substance: OMEPRAZOLE MAGNESIUM
     Indication: Gastrooesophageal reflux disease
     Route: 048
     Dates: start: 2006, end: 2016
  5. PRILOSEC [Suspect]
     Active Substance: OMEPRAZOLE MAGNESIUM
     Indication: Gastrooesophageal reflux disease
     Dosage: GENERIC
     Route: 065
     Dates: start: 2010, end: 2014
  6. PREVACID [Suspect]
     Active Substance: LANSOPRAZOLE
     Indication: Gastrooesophageal reflux disease
     Route: 065
     Dates: start: 200208, end: 201612
  7. PROTONIX [Suspect]
     Active Substance: PANTOPRAZOLE SODIUM
     Indication: Gastrooesophageal reflux disease
     Route: 065
     Dates: start: 200208, end: 201612
  8. PROTONIX [Suspect]
     Active Substance: PANTOPRAZOLE SODIUM
     Indication: Gastrooesophageal reflux disease
     Dosage: GENERIC
     Route: 065
     Dates: start: 20140303
  9. ENALAPRIL [Concomitant]
     Active Substance: ENALAPRIL
     Indication: Hypertension
     Dates: start: 2006, end: 2015
  10. DICLOFENAC [Concomitant]
     Active Substance: DICLOFENAC
     Indication: Pain
     Dates: start: 20070416, end: 20071119
  11. LIPITOR [Concomitant]
     Active Substance: ATORVASTATIN CALCIUM
     Indication: Blood cholesterol abnormal
     Dates: start: 2007, end: 2008
  12. SIMVASTATIN [Concomitant]
     Active Substance: SIMVASTATIN
     Indication: Blood cholesterol abnormal
     Dates: start: 2008, end: 2011
  13. LEVAQUIN [Concomitant]
     Active Substance: LEVOFLOXACIN
     Indication: Infection
     Dates: start: 2009, end: 2010
  14. AZITHROMYCIN [Concomitant]
     Active Substance: AZITHROMYCIN
     Indication: Infection
     Dates: start: 2007, end: 2011
  15. PLAVIX [Concomitant]
     Active Substance: CLOPIDOGREL BISULFATE
     Indication: Anticoagulant therapy
     Dates: start: 20100203, end: 20100704
  16. CLOPIDOGREL [Concomitant]
     Active Substance: CLOPIDOGREL BISULFATE
     Indication: Anticoagulant therapy
     Dates: start: 2013, end: 2014
  17. FUROSEMIDE [Concomitant]
     Active Substance: FUROSEMIDE
     Indication: Renal disorder
     Dates: start: 20140326
  18. TYLENOL [Concomitant]
     Active Substance: ACETAMINOPHEN
     Indication: Pain
  19. CBD DROPS [Concomitant]
     Indication: Pain
  20. ZANTAC [Concomitant]
     Active Substance: RANITIDINE HYDROCHLORIDE
  21. TUMS [Concomitant]
     Active Substance: CALCIUM CARBONATE
     Dosage: 1-2 TABLETS
  22. METFORMIN [Concomitant]
     Active Substance: METFORMIN HYDROCHLORIDE
  23. LEVOTHROID [Concomitant]
     Active Substance: LEVOTHYROXINE SODIUM
  24. ACTOS [Concomitant]
     Active Substance: PIOGLITAZONE HYDROCHLORIDE
  25. HYDROCHLOROTHIAZIDE [Concomitant]
     Active Substance: HYDROCHLOROTHIAZIDE
  26. ALPRAZOLAM [Concomitant]
     Active Substance: ALPRAZOLAM
  27. NABUMETONE [Concomitant]
     Active Substance: NABUMETONE
  28. JANUVIA [Concomitant]
     Active Substance: SITAGLIPTIN PHOSPHATE
  29. BYETTA [Concomitant]
     Active Substance: EXENATIDE
  30. LANTUS [Concomitant]
     Active Substance: INSULIN GLARGINE
  31. METOCLOPRAMIDE [Concomitant]
     Active Substance: METOCLOPRAMIDE
  32. WELCHOL [Concomitant]
     Active Substance: COLESEVELAM HYDROCHLORIDE
  33. CODEINE\PROMETHAZINE [Concomitant]
     Active Substance: CODEINE\PROMETHAZINE
  34. KETOCONAZOLE [Concomitant]
     Active Substance: KETOCONAZOLE
  35. NITROGLYCERIN [Concomitant]
     Active Substance: NITROGLYCERIN
  36. METOPROLOL [Concomitant]
     Active Substance: METOPROLOL
  37. GLIMEPIRIDE [Concomitant]
     Active Substance: GLIMEPIRIDE
  38. AMLODIPINE BESYLATE [Concomitant]
     Active Substance: AMLODIPINE BESYLATE
  39. KOMBIGLYZE XR [Concomitant]
     Active Substance: METFORMIN HYDROCHLORIDE\SAXAGLIPTIN HYDROCHLORIDE
  40. NOVOLOG [Concomitant]
     Active Substance: INSULIN ASPART
  41. ISOSORBIDE MONONITRATE [Concomitant]
     Active Substance: ISOSORBIDE MONONITRATE
  42. PREDNISONE [Concomitant]
     Active Substance: PREDNISONE
  43. ONDANSETRON [Concomitant]
     Active Substance: ONDANSETRON
  44. GATIFLOXACIN [Concomitant]
     Active Substance: GATIFLOXACIN
  45. VITAMIN D [Concomitant]
     Active Substance: VITAMIN D NOS
  46. VITAMIN C [Concomitant]
     Active Substance: ASCORBIC ACID
  47. HYDROCODONE/ HOM [Concomitant]
  48. ENALAPRIL [Concomitant]
     Active Substance: ENALAPRIL
  49. VICTOZA [Concomitant]
     Active Substance: LIRAGLUTIDE
  50. LEVOTHYROXINE [Concomitant]
     Active Substance: LEVOTHYROXINE
  51. DEXTROSE [Concomitant]
     Active Substance: DEXTROSE

REACTIONS (2)
  - Chronic kidney disease [Not Recovered/Not Resolved]
  - Renal failure [Unknown]

NARRATIVE: CASE EVENT DATE: 20140407
